FAERS Safety Report 16530491 (Version 2)
Quarter: 2019Q3

REPORT INFORMATION
  Report Type: Spontaneous
  Country: KR (occurrence: KR)
  Receive Date: 20190704
  Receipt Date: 20190709
  Transmission Date: 20191004
  Serious: Yes (Death, Hospitalization, Other)
  Sender: FDA-Public Use
  Company Number: KR-009507513-1907KOR000609

PATIENT
  Sex: Female

DRUGS (29)
  1. MEPEM [Concomitant]
     Active Substance: MEROPENEM
     Dosage: (QUANTITY 2 DAYS 2)
     Dates: start: 20190419, end: 20190502
  2. PHOSTEN [Concomitant]
     Dosage: UNK
     Dates: start: 20190422, end: 20190604
  3. MORPHINE SULFATE. [Concomitant]
     Active Substance: MORPHINE SULFATE
     Dosage: 1MG/ML, (QUANTITY 1 DAYS 4)
     Dates: start: 20190429, end: 20190513
  4. MEPEM [Concomitant]
     Active Substance: MEROPENEM
     Dosage: (QUANTITY 1 DAYS 3)
     Dates: start: 20190421, end: 20190528
  5. DEXTROSE. [Concomitant]
     Active Substance: DEXTROSE
     Dosage: 200 ML, (QUANTITY 2 DAYS 27)
     Dates: start: 20190420, end: 20190529
  6. MAGNESIUM SULFATE. [Concomitant]
     Active Substance: MAGNESIUM SULFATE
     Dosage: 2G/20ML (QUANTITY 1 DAYS 1)
     Dates: start: 20190513, end: 20190513
  7. PHYTONADIONE. [Concomitant]
     Active Substance: PHYTONADIONE
     Dosage: (QUANTITY 1 DAYS 1)
     Dates: start: 20190515, end: 20190516
  8. PN MIX PERI NO 2 [Concomitant]
     Dosage: (QUANTITY 1 DAYS 1)
     Dates: start: 20190430, end: 20190609
  9. KEYTRUDA [Suspect]
     Active Substance: PEMBROLIZUMAB
     Indication: NON-HODGKIN^S LYMPHOMA
     Dosage: QUANTITY: 1, DAYS: 1
     Dates: start: 20190516
  10. EPINEPHRINE. [Concomitant]
     Active Substance: EPINEPHRINE
     Dosage: (QUANTITY 1 DAYS 1)
     Dates: start: 20190507, end: 20190507
  11. DEXTROSE. [Concomitant]
     Active Substance: DEXTROSE
     Dosage: 100 MILLILITER, (QUANTITY 1 DAYS 2)
     Dates: start: 20190515, end: 20190515
  12. NEUTROGIN [Concomitant]
     Active Substance: LENOGRASTIM
     Dosage: (QUANTITY 1 DAYS 24)
     Dates: start: 20190503, end: 20190503
  13. DIFLUCAN [Concomitant]
     Active Substance: FLUCONAZOLE
     Dosage: (QUANTITY 4 DAYS 17)
     Route: 042
     Dates: start: 20190426, end: 20190512
  14. DEXTROSE. [Concomitant]
     Active Substance: DEXTROSE
     Dosage: 200 ML,  (QUANTITY 1 DAYS 40)
     Dates: start: 20190420, end: 20190605
  15. SODIUM CHLORIDE. [Concomitant]
     Active Substance: SODIUM CHLORIDE
     Dosage: UNK
     Dates: start: 20190429, end: 20190513
  16. MORPHINE HYDROCHLORIDE [Concomitant]
     Active Substance: MORPHINE HYDROCHLORIDE
     Dosage: UNK
     Dates: start: 20190407, end: 20190608
  17. VASOPRESSIN. [Concomitant]
     Active Substance: VASOPRESSIN
     Dosage: (QUANTITY 1 DAYS 6)
     Dates: start: 20190420, end: 20190515
  18. LEUCOVORIN. [Concomitant]
     Active Substance: LEUCOVORIN
     Dosage: (QUANTITY 4 DAYS 7)
     Dates: start: 20190501, end: 20190515
  19. CORTISOLU [Concomitant]
     Active Substance: HYDROCORTISONE SODIUM SUCCINATE
     Dosage: (QUANTITY 1 DAYS 22)
     Dates: start: 20190424, end: 20190513
  20. MORPHINE HYDROCHLORIDE [Concomitant]
     Active Substance: MORPHINE HYDROCHLORIDE
     Dosage: UNK
     Dates: start: 20190430, end: 20190606
  21. MORPHINE HYDROCHLORIDE [Concomitant]
     Active Substance: MORPHINE HYDROCHLORIDE
     Dosage: (QUANTITY 5 DAYS19)
     Dates: start: 20190502, end: 20190519
  22. NEUTROGIN [Concomitant]
     Active Substance: LENOGRASTIM
     Dosage: (QUANTITY 1 DAYS 1)
     Dates: start: 20190503, end: 20190503
  23. DEXTROSE. [Concomitant]
     Active Substance: DEXTROSE
     Dosage: 100 MILLILITER, (QUANTITY 3 DAYS 1)
     Dates: start: 20190516, end: 20190516
  24. MEPEM [Concomitant]
     Active Substance: MEROPENEM
     Dosage: (QUANTITY 3 DAYS 22)
     Dates: start: 20190420, end: 20190606
  25. DEXTROSE. [Concomitant]
     Active Substance: DEXTROSE
     Dosage: 200 MILLILITER, (QUANTITY 2 DAYS 16)
     Dates: start: 20190515, end: 20190609
  26. LEUCOVORIN. [Concomitant]
     Active Substance: LEUCOVORIN
     Dosage: (QUANTITY 2 DAYS 1)
     Dates: start: 20190502, end: 20190502
  27. Q-PAM [Concomitant]
     Dosage: (QUANTITY 2 DAYS 35)
     Dates: start: 20190507, end: 20190609
  28. METHYSOL [Concomitant]
     Dosage: (QUANTITY 1 DAYS 40)
     Dates: start: 20190409, end: 20190609
  29. MEPEM [Concomitant]
     Active Substance: MEROPENEM
     Dosage: (QUANTITY 6 DAYS 12)
     Dates: start: 20190421, end: 20190503

REACTIONS (3)
  - Adverse event [Unknown]
  - Product use in unapproved indication [Unknown]
  - Death [Fatal]

NARRATIVE: CASE EVENT DATE: 2019
